FAERS Safety Report 24116199 (Version 3)
Quarter: 2024Q3

REPORT INFORMATION
  Report Type: Spontaneous
  Country: US (occurrence: US)
  Receive Date: 20240722
  Receipt Date: 20240912
  Transmission Date: 20241016
  Serious: No
  Sender: ROCHE
  Company Number: US-ROCHE-3579838

PATIENT
  Age: 57 Year
  Sex: Female
  Weight: 65.77 kg

DRUGS (7)
  1. ACTEMRA [Suspect]
     Active Substance: TOCILIZUMAB
     Indication: Rheumatoid arthritis
     Route: 058
     Dates: start: 2023
  2. ACTEMRA [Suspect]
     Active Substance: TOCILIZUMAB
     Route: 058
  3. IMURAN [Concomitant]
     Active Substance: AZATHIOPRINE
     Indication: Rheumatoid arthritis
     Route: 048
  4. QULIPTA [Concomitant]
     Active Substance: ATOGEPANT
     Route: 048
  5. TOPAMAX [Concomitant]
     Active Substance: TOPIRAMATE
     Indication: Migraine
     Route: 048
  6. EVISTA [Concomitant]
     Active Substance: RALOXIFENE HYDROCHLORIDE
     Route: 048
  7. ALBUTEROL SULFATE [Concomitant]
     Active Substance: ALBUTEROL SULFATE
     Dosage: 2 PUFFS EVERY 4 HOURS
     Route: 048

REACTIONS (14)
  - Vasodilatation [Recovered/Resolved]
  - Injection site haemorrhage [Recovered/Resolved]
  - Contusion [Recovered/Resolved]
  - Vascular injury [Recovered/Resolved]
  - Psoriasis [Not Recovered/Not Resolved]
  - Wrong technique in device usage process [Unknown]
  - Device leakage [Unknown]
  - Muscle spasms [Not Recovered/Not Resolved]
  - Pain [Not Recovered/Not Resolved]
  - Device difficult to use [Unknown]
  - Incorrect dose administered [Unknown]
  - Device issue [Unknown]
  - Product preparation error [Unknown]
  - Accidental exposure to product [Unknown]

NARRATIVE: CASE EVENT DATE: 20240101
